FAERS Safety Report 12252443 (Version 4)
Quarter: 2016Q2

REPORT INFORMATION
  Report Type: Spontaneous
  Country: US (occurrence: US)
  Receive Date: 20160411
  Receipt Date: 20160510
  Transmission Date: 20160815
  Serious: Yes (Death, Hospitalization, Other)
  Sender: FDA-Public Use
  Company Number: US-UNITED THERAPEUTICS-UNT-2016-005483

PATIENT
  Age: 69 Year
  Sex: Male
  Weight: 97.69 kg

DRUGS (3)
  1. OXYGEN. [Concomitant]
     Active Substance: OXYGEN
     Indication: PRODUCT USED FOR UNKNOWN INDICATION
  2. SILDENAFIL. [Suspect]
     Active Substance: SILDENAFIL
     Indication: PRODUCT USED FOR UNKNOWN INDICATION
  3. REMODULIN [Suspect]
     Active Substance: TREPROSTINIL
     Indication: PULMONARY ARTERIAL HYPERTENSION
     Dosage: 0.010 ?G/KG, CONTINUING
     Route: 041
     Dates: start: 20160329, end: 20160501

REACTIONS (10)
  - Delirium [Unknown]
  - Agitation [Unknown]
  - No therapeutic response [Unknown]
  - Death [Fatal]
  - Hypoxia [Unknown]
  - Blood glucose decreased [Unknown]
  - Adverse drug reaction [Unknown]
  - General physical health deterioration [Unknown]
  - Sluggishness [Unknown]
  - Confusional state [Unknown]

NARRATIVE: CASE EVENT DATE: 20160331
